FAERS Safety Report 24328269 (Version 5)
Quarter: 2024Q4

REPORT INFORMATION
  Report Type: Report from Study
  Country: US (occurrence: US)
  Receive Date: 20240917
  Receipt Date: 20241119
  Transmission Date: 20250114
  Serious: Yes (Other)
  Sender: SUNOVION
  Company Number: US-SUMITOMO PHARMA SWITZERLAND GMBH-2024SPA001801

PATIENT

DRUGS (4)
  1. ORGOVYX [Suspect]
     Active Substance: RELUGOLIX
     Indication: Prostate cancer
     Dosage: 360 MG
     Route: 048
     Dates: start: 20240818, end: 20240818
  2. ORGOVYX [Suspect]
     Active Substance: RELUGOLIX
     Dosage: 120 MG, QD
     Route: 048
     Dates: start: 20240819
  3. TAMSULOSIN [Concomitant]
     Active Substance: TAMSULOSIN
  4. B12 [Concomitant]

REACTIONS (20)
  - Diabetes mellitus [Unknown]
  - Body temperature abnormal [Recovering/Resolving]
  - Decreased appetite [Unknown]
  - Thirst [Unknown]
  - Nervous system disorder [Unknown]
  - Bacterial test positive [Unknown]
  - White blood cell count decreased [Unknown]
  - Hepatic enzyme abnormal [Unknown]
  - Hyperphagia [Unknown]
  - Balance disorder [Unknown]
  - Blood testosterone decreased [Unknown]
  - Liver disorder [Unknown]
  - Night sweats [Not Recovered/Not Resolved]
  - Musculoskeletal discomfort [Unknown]
  - Insomnia [Unknown]
  - Red blood cell count decreased [Unknown]
  - Musculoskeletal stiffness [Recovering/Resolving]
  - Fatigue [Recovering/Resolving]
  - Headache [Recovering/Resolving]
  - Hot flush [Unknown]
